FAERS Safety Report 8579660-X (Version None)
Quarter: 2012Q3

REPORT INFORMATION
  Report Type: 
  Country: None (occurrence: None)
  Receive Date: 20120808
  Receipt Date: 20120801
  Transmission Date: 20120928
  Serious: Yes (Hospitalization)
  Sender: FDA-Public Use
  Company Number: FR-ABBOTT-12P-056-0933862-00

PATIENT
  Sex: Female

DRUGS (2)
  1. HUMIRA [Suspect]
     Indication: CROHN'S DISEASE
     Dosage: 4 INJECTIONS LOADING DOSE
     Dates: start: 20120423, end: 20120423
  2. HUMIRA [Suspect]
     Route: 058
     Dates: start: 20120423

REACTIONS (5)
  - PYREXIA [None]
  - HYPERPYREXIA [None]
  - CHILLS [None]
  - INJECTION SITE ERYTHEMA [None]
  - RASH [None]
